FAERS Safety Report 9970322 (Version 2)
Quarter: 2014Q1

REPORT INFORMATION
  Report Type: Spontaneous
  Country: GB (occurrence: GB)
  Receive Date: 20140306
  Receipt Date: 20140331
  Transmission Date: 20141002
  Serious: Yes (Hospitalization)
  Sender: FDA-Public Use
  Company Number: GB-UCBSA-113574

PATIENT
  Age: 54 Year
  Sex: Female

DRUGS (2)
  1. KEPPRA [Suspect]
     Indication: TREMOR
     Dosage: FOR APPROXIMATELY 2 YEARS
  2. KEPPRA [Suspect]
     Indication: TREMOR

REACTIONS (2)
  - Tremor [Recovering/Resolving]
  - Drug withdrawal syndrome [Recovering/Resolving]
